FAERS Safety Report 16706335 (Version 1)
Quarter: 2019Q3

REPORT INFORMATION
  Report Type: Spontaneous
  Country: US (occurrence: US)
  Receive Date: 20190815
  Receipt Date: 20190815
  Transmission Date: 20191004
  Serious: Yes (Other)
  Sender: FDA-Public Use
  Company Number: US-PFIZER INC-2018519155

PATIENT
  Age: 59 Year
  Sex: Female
  Weight: 53.52 kg

DRUGS (4)
  1. ARTHROTEC [Suspect]
     Active Substance: DICLOFENAC SODIUM\MISOPROSTOL
     Indication: NECK PAIN
     Dosage: 1 DF, 2X/DAY (DICLOFENAC SODIUM: 75MG/ MISOPROSTOL:200 MCG)
     Route: 048
  2. TOPIRAMATE. [Concomitant]
     Active Substance: TOPIRAMATE
     Indication: NEURALGIA
     Dosage: 50 MG, 3X/DAY
  3. SIMVASTATIN. [Concomitant]
     Active Substance: SIMVASTATIN
     Indication: VASCULAR OCCLUSION
     Dosage: UNK
  4. ARTHROTEC [Suspect]
     Active Substance: DICLOFENAC SODIUM\MISOPROSTOL
     Indication: OSTEOARTHRITIS
     Dosage: 75 OVER 200 , 2X/DAY
     Route: 048

REACTIONS (1)
  - Barrett^s oesophagus [Unknown]
